FAERS Safety Report 10008999 (Version 1)
Quarter: 2014Q1

REPORT INFORMATION
  Report Type: Spontaneous
  Country: US (occurrence: US)
  Receive Date: 20140313
  Receipt Date: 20140313
  Transmission Date: 20141002
  Serious: No
  Sender: FDA-Public Use
  Company Number: US-INCYTE CORPORATION-2012IN001253

PATIENT
  Age: 75 Year
  Sex: Male

DRUGS (5)
  1. JAKAFI [Suspect]
     Indication: MYELOFIBROSIS
     Dosage: 10 MG, BID
     Route: 048
     Dates: start: 20120131, end: 20120615
  2. TOPROL [Concomitant]
  3. FRAGMIN [Concomitant]
  4. LORTAB [Concomitant]
  5. IBUPROFEN [Concomitant]

REACTIONS (2)
  - Hypoaesthesia [Unknown]
  - Peripheral vascular disorder [Unknown]
